FAERS Safety Report 10776056 (Version 1)
Quarter: 2015Q1

REPORT INFORMATION
  Report Type: Spontaneous
  Country: US (occurrence: None)
  Receive Date: 20150205
  Receipt Date: 20150205
  Transmission Date: 20150721
  Serious: Yes (Other)
  Sender: FDA-Public Use
  Company Number: None

PATIENT
  Age: 59 Year
  Sex: Female

DRUGS (3)
  1. BRINTELLIX [Suspect]
     Active Substance: VORTIOXETINE HYDROBROMIDE
     Indication: PANIC DISORDER
     Dosage: 1 TAB, ONCE DAILY, TAKEN BY MOUTH
     Route: 048
     Dates: start: 20140620, end: 20140919
  2. BRINTELLIX [Suspect]
     Active Substance: VORTIOXETINE HYDROBROMIDE
     Indication: DEPRESSION
     Dosage: 1 TAB, ONCE DAILY, TAKEN BY MOUTH
     Route: 048
     Dates: start: 20140620, end: 20140919
  3. BRINTELLIX [Suspect]
     Active Substance: VORTIOXETINE HYDROBROMIDE
     Indication: AGORAPHOBIA
     Dosage: 1 TAB, ONCE DAILY, TAKEN BY MOUTH
     Route: 048
     Dates: start: 20140620, end: 20140919

REACTIONS (3)
  - Pruritus [None]
  - Irritability [None]
  - Nerve injury [None]

NARRATIVE: CASE EVENT DATE: 20140620
